FAERS Safety Report 5325597-9 (Version None)
Quarter: 2007Q2

REPORT INFORMATION
  Report Type: 
  Country: None (occurrence: None)
  Receive Date: 20070515
  Receipt Date: 20070503
  Transmission Date: 20071010
  Serious: Yes (Hospitalization)
  Sender: FDA-Public Use
  Company Number: US-ELI_LILLY_AND_COMPANY-US200705000976

PATIENT
  Age: 63 Year
  Sex: Female

DRUGS (1)
  1. PROZAC [Suspect]
     Dosage: 20 MG, DAILY (1/D)
     Route: 048

REACTIONS (1)
  - GASTRIC BYPASS [None]
